FAERS Safety Report 25788547 (Version 2)
Quarter: 2025Q4

REPORT INFORMATION
  Report Type: Spontaneous
  Country: AU (occurrence: AU)
  Receive Date: 20250910
  Receipt Date: 20251010
  Transmission Date: 20260118
  Serious: Yes (Other)
  Sender: AIRGAS
  Company Number: AU-ALSI-2025000242

PATIENT
  Age: 44 Year
  Sex: Female

DRUGS (1)
  1. NITROUS OXIDE [Suspect]
     Active Substance: NITROUS OXIDE
     Indication: General anaesthesia
     Dates: start: 20250807, end: 20250807

REACTIONS (3)
  - Loss of consciousness [Recovered/Resolved]
  - Goitre [Unknown]
  - Nausea [Recovered/Resolved]

NARRATIVE: CASE EVENT DATE: 20250807
